FAERS Safety Report 6800616-9 (Version None)
Quarter: 2010Q2

REPORT INFORMATION
  Report Type: 
  Country: None (occurrence: None)
  Receive Date: 20100629
  Receipt Date: 20100611
  Transmission Date: 20101027
  Serious: Yes (Death, Hospitalization, Other)
  Sender: FDA-Public Use
  Company Number: US-BAYER-201010660NA

PATIENT
  Age: 21 Year
  Sex: Female
  Weight: 91 kg

DRUGS (5)
  1. YASMIN [Suspect]
     Indication: CONTRACEPTION
     Route: 048
  2. YAZ [Suspect]
     Indication: POLYCYSTIC OVARIES
     Route: 048
     Dates: start: 20061201, end: 20070701
  3. METFORMIN HCL [Concomitant]
     Indication: POLYCYSTIC OVARIES
     Dosage: UNIT DOSE: 500 MG
     Dates: start: 20061201
  4. PONSTEL [Concomitant]
     Indication: ABDOMINAL DISCOMFORT
     Dosage: UNIT DOSE: 250 MG
  5. MINOCYCLINE [Concomitant]
     Indication: SKIN DISORDER
     Dosage: UNIT DOSE: 100 MG

REACTIONS (17)
  - ASTHMA [None]
  - ATELECTASIS [None]
  - CARDIO-RESPIRATORY ARREST [None]
  - CHEST DISCOMFORT [None]
  - CHEST PAIN [None]
  - COUGH [None]
  - DYSPEPSIA [None]
  - DYSPNOEA [None]
  - NASAL CONGESTION [None]
  - OROPHARYNGEAL PAIN [None]
  - PNEUMONIA [None]
  - PNEUMOTHORAX [None]
  - PULMONARY EMBOLISM [None]
  - PULMONARY INFARCTION [None]
  - PYREXIA [None]
  - SINUSITIS [None]
  - WHEEZING [None]
